FAERS Safety Report 12710657 (Version 1)
Quarter: 2016Q3

REPORT INFORMATION
  Report Type: Spontaneous
  Country: CN (occurrence: CN)
  Receive Date: 20160902
  Receipt Date: 20160902
  Transmission Date: 20161109
  Serious: Yes (Other)
  Sender: FDA-Public Use
  Company Number: CN-PFIZER INC-2016402686

PATIENT
  Age: 67 Year
  Sex: Male
  Weight: 58 kg

DRUGS (2)
  1. PHARMORUBICIN [Suspect]
     Active Substance: EPIRUBICIN
     Indication: BLADDER CANCER
     Dosage: 50 MG, WEEKLY
     Route: 043
     Dates: start: 20160309, end: 20160331
  2. STERILE WATER [Concomitant]
     Active Substance: WATER
     Dosage: 40 ML, WEEKLY
     Route: 043
     Dates: start: 20160309, end: 20160331

REACTIONS (6)
  - Pruritus [Recovering/Resolving]
  - Cystitis-like symptom [Unknown]
  - Rash [Recovering/Resolving]
  - Dyspnoea [Recovering/Resolving]
  - Flushing [Recovering/Resolving]
  - Laryngeal oedema [Recovering/Resolving]

NARRATIVE: CASE EVENT DATE: 20160331
